FAERS Safety Report 19027779 (Version 1)
Quarter: 2021Q1

REPORT INFORMATION
  Report Type: Spontaneous
  Country: US (occurrence: US)
  Receive Date: 20210319
  Receipt Date: 20210319
  Transmission Date: 20210420
  Serious: Yes (Other)
  Sender: FDA-Public Use
  Company Number: US-STRIDES ARCOLAB LIMITED-2021SP003289

PATIENT
  Age: 14 Year
  Sex: Female

DRUGS (2)
  1. PREDNISOLONE. [Suspect]
     Active Substance: PREDNISOLONE
     Dosage: UNK, DOSE TAPER
     Route: 065
  2. PREDNISOLONE. [Suspect]
     Active Substance: PREDNISOLONE
     Indication: EVANS SYNDROME
     Dosage: UNK
     Route: 065

REACTIONS (3)
  - Thrombotic microangiopathy [Unknown]
  - Acute kidney injury [Unknown]
  - Hypertension [Unknown]
